FAERS Safety Report 11808089 (Version 1)
Quarter: 2015Q4

REPORT INFORMATION
  Report Type: Spontaneous
  Country: IT (occurrence: IT)
  Receive Date: 20151207
  Receipt Date: 20151207
  Transmission Date: 20160305
  Serious: Yes (Other)
  Sender: FDA-Public Use
  Company Number: IT-BAYER-2015-478147

PATIENT
  Age: 43 Year
  Sex: Female

DRUGS (2)
  1. LOCABIOTAL [Suspect]
     Active Substance: FUSAFUNGINE
     Indication: NASOPHARYNGITIS
     Dosage: 2 DF, ONCE
     Route: 055
     Dates: start: 20151109, end: 20151109
  2. ASPIRINA DOLORE E INFIAMMAZIONE 500 MG [Suspect]
     Active Substance: ASPIRIN
     Indication: NASOPHARYNGITIS
     Dosage: 500 MG, ONCE
     Route: 048
     Dates: start: 20151109, end: 20151109

REACTIONS (1)
  - Lip oedema [Recovering/Resolving]

NARRATIVE: CASE EVENT DATE: 20151110
